FAERS Safety Report 10354007 (Version 2)
Quarter: 2014Q3

REPORT INFORMATION
  Report Type: Spontaneous
  Country: US (occurrence: US)
  Receive Date: 20140731
  Receipt Date: 20140731
  Transmission Date: 20150326
  Serious: Yes (Other)
  Sender: FDA-Public Use
  Company Number: US-UNITED THERAPEUTICS-UNT-2014-003610

PATIENT
  Age: 46 Year
  Sex: Female
  Weight: 75.73 kg

DRUGS (3)
  1. ADCIRCA [Concomitant]
     Active Substance: TADALAFIL
     Indication: PRODUCT USED FOR UNKNOWN INDICATION
  2. WARFARIN [Concomitant]
     Active Substance: WARFARIN
     Indication: PRODUCT USED FOR UNKNOWN INDICATION
  3. REMODULIN [Suspect]
     Active Substance: TREPROSTINIL
     Indication: PULMONARY ARTERIAL HYPERTENSION
     Dosage: 0.027 ?G, CONTINUING
     Route: 058
     Dates: start: 20110312

REACTIONS (11)
  - Cardiac failure [Recovered/Resolved]
  - Right ventricular failure [Recovered/Resolved]
  - Asthenia [Unknown]
  - Fluid overload [Recovered/Resolved]
  - Blood pressure decreased [Recovering/Resolving]
  - Cardiogenic shock [Recovered/Resolved]
  - Blood lactic acid increased [Unknown]
  - Vomiting [Unknown]
  - Renal failure acute [Recovered/Resolved]
  - Hyperhidrosis [Unknown]
  - Septic shock [Recovered/Resolved]

NARRATIVE: CASE EVENT DATE: 20140702
